FAERS Safety Report 5789033-0 (Version None)
Quarter: 2008Q2

REPORT INFORMATION
  Report Type: 
  Country: None (occurrence: None)
  Receive Date: 20080626
  Receipt Date: 20080618
  Transmission Date: 20081010
  Serious: Yes (Other)
  Sender: FDA-Public Use
  Company Number: B0360744A

PATIENT
  Sex: Female

DRUGS (15)
  1. PAROXETINE HCL [Suspect]
     Indication: DEPRESSION
     Route: 065
     Dates: start: 20010523, end: 20030501
  2. ZOPICLONE [Concomitant]
     Dates: start: 20011201
  3. PREMARIN [Concomitant]
     Indication: HORMONE REPLACEMENT THERAPY
     Dates: end: 20010101
  4. NICOTINE [Concomitant]
     Dates: start: 20010101, end: 20020101
  5. ELLESTE-SOLO [Concomitant]
     Indication: HORMONE REPLACEMENT THERAPY
     Dates: start: 20030114
  6. TEMAZEPAM [Concomitant]
     Dates: start: 20030429
  7. MIRTAZAPINE [Concomitant]
     Dates: start: 20060101
  8. VENLAFAXINE HCL [Concomitant]
     Dates: start: 20050101
  9. CHLORPROMAZINE [Concomitant]
     Dates: end: 20061101
  10. PROMAZINE HYDROCHLORIDE [Concomitant]
     Dates: start: 20071130
  11. CITALOPRAM HYDROBROMIDE [Concomitant]
     Dates: start: 20080304
  12. CLOTAM [Concomitant]
     Indication: MIGRAINE
     Dates: start: 20030101
  13. PIZOTIFEN [Concomitant]
     Indication: MIGRAINE
     Dates: start: 20060101
  14. TOLTERODINE TARTRATE [Concomitant]
     Indication: INCONTINENCE
     Dates: start: 20060101
  15. XENICAL [Concomitant]
     Dates: start: 20070601

REACTIONS (29)
  - AGGRESSION [None]
  - ANGER [None]
  - ANOREXIA [None]
  - ANTISOCIAL PERSONALITY DISORDER [None]
  - DEPRESSED MOOD [None]
  - DEPRESSION [None]
  - DEPRESSIVE SYMPTOM [None]
  - DIZZINESS [None]
  - DRUG WITHDRAWAL SYNDROME [None]
  - EMOTIONAL DISTRESS [None]
  - FATIGUE [None]
  - HEADACHE [None]
  - HOMICIDAL IDEATION [None]
  - HYPERACUSIS [None]
  - HYPERHIDROSIS [None]
  - INSOMNIA [None]
  - IRRITABILITY [None]
  - LETHARGY [None]
  - MUSCLE TWITCHING [None]
  - NAUSEA [None]
  - NIGHTMARE [None]
  - PARAESTHESIA [None]
  - RESTLESSNESS [None]
  - SKIN DISORDER [None]
  - SOCIAL AVOIDANT BEHAVIOUR [None]
  - SUICIDAL IDEATION [None]
  - TENSION [None]
  - TREMOR [None]
  - VIOLENCE-RELATED SYMPTOM [None]
